FAERS Safety Report 13802309 (Version 17)
Quarter: 2021Q2

REPORT INFORMATION
  Report Type: Spontaneous
  Country: US (occurrence: US)
  Receive Date: 20170728
  Receipt Date: 20210423
  Transmission Date: 20210716
  Serious: No
  Sender: FDA-Public Use
  Company Number: US-PFIZER INC-2017328467

PATIENT
  Age: 55 Year
  Sex: Female
  Weight: 57 kg

DRUGS (6)
  1. ESTRING [Suspect]
     Active Substance: ESTRADIOL
     Indication: URINARY INCONTINENCE
  2. ESTRING [Suspect]
     Active Substance: ESTRADIOL
     Indication: VULVOVAGINAL PAIN
  3. WILD YAM [Concomitant]
     Dosage: UNK UNK, DAILY (1 OF 2 CAPS DAILY 400MG EACH) (PERIODICALLY LAST 6?8 WKS)
  4. ESTRING [Suspect]
     Active Substance: ESTRADIOL
     Indication: ATROPHIC VULVOVAGINITIS
     Dosage: UNK, ALTERNATE DAY (INSERT 0.1 MG/GM VAGINAL CREAM MONDAY/WEDNESDAY/FRIDAY)
  5. PROGESTERONE. [Concomitant]
     Active Substance: PROGESTERONE
     Dosage: UNK
  6. ESTRING [Suspect]
     Active Substance: ESTRADIOL
     Indication: DYSPAREUNIA
     Dosage: 2 MG, EVERY 3 MONTHS
     Route: 067
     Dates: start: 2017, end: 201801

REACTIONS (24)
  - Anxiety [Unknown]
  - Affective disorder [Unknown]
  - Memory impairment [Unknown]
  - Off label use [Unknown]
  - Malaise [Unknown]
  - Bacterial infection [Recovering/Resolving]
  - Feeling abnormal [Unknown]
  - Hyperhidrosis [Unknown]
  - Incorrect dose administered [Unknown]
  - Therapeutic response unexpected [Unknown]
  - Vulvovaginal mycotic infection [Recovering/Resolving]
  - Urethral pain [Recovered/Resolved]
  - Depression [Unknown]
  - Therapeutic product effect decreased [Unknown]
  - Stress [Unknown]
  - Fluid retention [Unknown]
  - Alopecia [Unknown]
  - Road traffic accident [Unknown]
  - Tenderness [Not Recovered/Not Resolved]
  - Abdominal distension [Unknown]
  - Visual impairment [Unknown]
  - Confusional state [Unknown]
  - Hormone level abnormal [Unknown]
  - Product use issue [Unknown]

NARRATIVE: CASE EVENT DATE: 2017
